FAERS Safety Report 5121957-X (Version None)
Quarter: 2006Q4

REPORT INFORMATION
  Report Type: 
  Country: None (occurrence: None)
  Receive Date: 20061006
  Receipt Date: 20060927
  Transmission Date: 20070319
  Serious: Yes (Hospitalization, Other)
  Sender: FDA-Public Use
  Company Number: US-JNJFOC-20060402812

PATIENT
  Sex: Male
  Weight: 87.09 kg

DRUGS (7)
  1. RISPERDAL [Suspect]
     Route: 048
  2. RISPERDAL [Suspect]
     Route: 048
  3. RISPERDAL [Suspect]
     Indication: DRUG USE FOR UNKNOWN INDICATION
     Route: 048
  4. STRATTERA [Concomitant]
  5. ZYRTEC [Concomitant]
  6. CONCERTA [Concomitant]
     Route: 048
  7. PERIACTIN [Concomitant]

REACTIONS (2)
  - DIABETES MELLITUS INSULIN-DEPENDENT [None]
  - WEIGHT INCREASED [None]
